FAERS Safety Report 21699595 (Version 2)
Quarter: 2023Q1

REPORT INFORMATION
  Report Type: Spontaneous
  Country: US (occurrence: US)
  Receive Date: 20221208
  Receipt Date: 20230112
  Transmission Date: 20230417
  Serious: No
  Sender: FDA-Public Use
  Company Number: US-PFIZER INC-PV202200119340

PATIENT
  Age: 72 Year
  Sex: Male

DRUGS (2)
  1. XELJANZ [Suspect]
     Active Substance: TOFACITINIB CITRATE
     Indication: Rheumatoid arthritis
     Dosage: UNK
  2. TRULICITY [Concomitant]
     Active Substance: DULAGLUTIDE
     Dosage: UNK

REACTIONS (3)
  - Mouth ulceration [Unknown]
  - Feeding disorder [Unknown]
  - Hypoacusis [Unknown]
